FAERS Safety Report 17152838 (Version 5)
Quarter: 2020Q4

REPORT INFORMATION
  Report Type: Spontaneous
  Country: FR (occurrence: FR)
  Receive Date: 20191213
  Receipt Date: 20201231
  Transmission Date: 20210113
  Serious: Yes (Hospitalization)
  Sender: FDA-Public Use
  Company Number: FR-US-PROVELL PHARMACEUTICALS LLC-9134122

PATIENT
  Age: 70 Year
  Sex: Female
  Weight: 91 kg

DRUGS (18)
  1. DOLIPRANE [Concomitant]
     Active Substance: ACETAMINOPHEN
     Indication: PRODUCT USED FOR UNKNOWN INDICATION
     Dosage: 1 G AS NEEDED
  2. MIANSERINE [Concomitant]
     Active Substance: MIANSERIN HYDROCHLORIDE
     Dosage: INCREASED TO 1 TABLET IN MORNING AND EVENING, FORM STRENGTH: 10 (UNIT UNSPECIFIED)
  3. SEROPLEX [Concomitant]
     Active Substance: ESCITALOPRAM OXALATE
     Indication: PRODUCT USED FOR UNKNOWN INDICATION
  4. LYRICA [Concomitant]
     Active Substance: PREGABALIN
     Dosage: FORM STRENGTH: LYRICA 50 (UNIT UNSPECIFIED)
  5. MIANSERINE [Concomitant]
     Active Substance: MIANSERIN HYDROCHLORIDE
     Indication: PRODUCT USED FOR UNKNOWN INDICATION
     Dosage: UNKNOWN DOSE
  6. VESICARE [Concomitant]
     Active Substance: SOLIFENACIN SUCCINATE
     Indication: PRODUCT USED FOR UNKNOWN INDICATION
  7. MIANSERINE [Concomitant]
     Active Substance: MIANSERIN HYDROCHLORIDE
     Dosage: FORM STRENGTH: 10 (UNIT UNSPECIFIED)
  8. NAFTIDROFURYL [Concomitant]
     Active Substance: NAFRONYL
     Indication: PRODUCT USED FOR UNKNOWN INDICATION
  9. IMOVANE [Concomitant]
     Active Substance: ZOPICLONE
     Indication: PRODUCT USED FOR UNKNOWN INDICATION
     Dosage: UNIT DOSE: 7.5 (UNIT UNSPECIFIED)
  10. FORLAX [Concomitant]
     Active Substance: POLYETHYLENE GLYCOL 4000
     Indication: PRODUCT USED FOR UNKNOWN INDICATION
  11. LEVOTHYROX [Suspect]
     Active Substance: LEVOTHYROXINE
     Indication: HYPOTHYROIDISM
     Dosage: THERAPY START DATE: 2017
  12. LEVOTHYROX [Suspect]
     Active Substance: LEVOTHYROXINE
  13. LYRICA [Concomitant]
     Active Substance: PREGABALIN
  14. LEVOTHYROX [Suspect]
     Active Substance: LEVOTHYROXINE
  15. LEVOTHYROX [Suspect]
     Active Substance: LEVOTHYROXINE
     Dosage: 125 UG PLUS HALF OF 25 UG
  16. LYRICA [Concomitant]
     Active Substance: PREGABALIN
     Indication: PRODUCT USED FOR UNKNOWN INDICATION
     Dosage: A NEUROLEPTIC DRUG
  17. SEROPLEX [Concomitant]
     Active Substance: ESCITALOPRAM OXALATE
  18. METFORMIN [Concomitant]
     Active Substance: METFORMIN HYDROCHLORIDE
     Indication: PRODUCT USED FOR UNKNOWN INDICATION

REACTIONS (9)
  - Hyperthyroidism [Unknown]
  - Vitamin D deficiency [Unknown]
  - Vitamin B12 deficiency [Unknown]
  - Weight increased [Recovered/Resolved]
  - Mixed anxiety and depressive disorder [Not Recovered/Not Resolved]
  - Alopecia [Recovered/Resolved]
  - Myalgia [Recovered/Resolved]
  - General physical health deterioration [Not Recovered/Not Resolved]
  - Fall [Unknown]

NARRATIVE: CASE EVENT DATE: 2017
